FAERS Safety Report 10552653 (Version 5)
Quarter: 2016Q2

REPORT INFORMATION
  Report Type: Spontaneous
  Country: CA (occurrence: CA)
  Receive Date: 20141029
  Receipt Date: 20160401
  Transmission Date: 20160815
  Serious: Yes (Hospitalization, Other)
  Sender: FDA-Public Use
  Company Number: CA-GLAXOSMITHKLINE-A1059761A

PATIENT
  Age: 31 Year
  Sex: Female
  Weight: 54 kg

DRUGS (2)
  1. BENLYSTA [Suspect]
     Active Substance: BELIMUMAB
     Indication: SYSTEMIC LUPUS ERYTHEMATOSUS
     Dosage: 540 MG, CYC
     Route: 042
     Dates: start: 20111026
  2. BENLYSTA [Suspect]
     Active Substance: BELIMUMAB
     Dosage: 510 MG, CYC
     Route: 042

REACTIONS (8)
  - Viral infection [Unknown]
  - Nasopharyngitis [Unknown]
  - Respiratory tract infection [Recovering/Resolving]
  - Pyrexia [Unknown]
  - Anaemia [Recovering/Resolving]
  - Malaise [Unknown]
  - Oropharyngeal pain [Unknown]
  - Influenza [Unknown]

NARRATIVE: CASE EVENT DATE: 20140908
